FAERS Safety Report 22153254 (Version 1)
Quarter: 2023Q1

REPORT INFORMATION
  Report Type: Spontaneous
  Country: US (occurrence: US)
  Receive Date: 20230329
  Receipt Date: 20230329
  Transmission Date: 20230417
  Serious: No
  Sender: FDA-Public Use
  Company Number: US-Santen Inc-2023-USA-002460

PATIENT
  Sex: Female

DRUGS (1)
  1. NATACYN [Suspect]
     Active Substance: NATAMYCIN
     Indication: Fungal infection
     Dosage: 1 DROP TO LEFT EYE EVERY HOUR
     Route: 047

REACTIONS (4)
  - Product physical consistency issue [Unknown]
  - Product residue present [Unknown]
  - Ocular discomfort [Unknown]
  - Foreign body sensation in eyes [Unknown]

NARRATIVE: CASE EVENT DATE: 20230321
